FAERS Safety Report 14907951 (Version 2)
Quarter: 2018Q2

REPORT INFORMATION
  Report Type: Report from Study
  Country: CA (occurrence: CA)
  Receive Date: 20180517
  Receipt Date: 20180521
  Transmission Date: 20180711
  Serious: Yes (Hospitalization)
  Sender: FDA-Public Use
  Company Number: CA-ROCHE-2122755

PATIENT
  Age: 48 Year
  Sex: Male
  Weight: 107.4 kg

DRUGS (5)
  1. AMLODIPINE [Concomitant]
     Active Substance: AMLODIPINE BESYLATE
     Route: 065
     Dates: start: 201801
  2. RO 6874281 (FAP IL2V MAB) [Suspect]
     Active Substance: RO-6874281
     Indication: RENAL CELL CARCINOMA
     Dosage: LAST DOSE PRIOR TO SAE WAS 07/MAY/2018
     Route: 042
     Dates: start: 20180507, end: 20180511
  3. ACETAMINOPHEN. [Concomitant]
     Active Substance: ACETAMINOPHEN
     Dosage: DOSE 500 TO 1000MG
     Route: 065
     Dates: start: 201803
  4. VITAMIN B12 [Concomitant]
     Active Substance: CYANOCOBALAMIN
     Route: 065
     Dates: start: 201801
  5. ATEZOLIZUMAB. [Suspect]
     Active Substance: ATEZOLIZUMAB
     Indication: RENAL CELL CARCINOMA
     Dosage: LAST DOSE PRIOR TO SAE WAS 07/MAY/2018
     Route: 042
     Dates: start: 20180507, end: 20180511

REACTIONS (1)
  - Vasogenic cerebral oedema [Recovered/Resolved]

NARRATIVE: CASE EVENT DATE: 20180508
